FAERS Safety Report 9934973 (Version 2)
Quarter: 2014Q1

REPORT INFORMATION
  Report Type: Report from Study
  Country: AU (occurrence: AU)
  Receive Date: 20140228
  Receipt Date: 20140318
  Transmission Date: 20141002
  Serious: No
  Sender: FDA-Public Use
  Company Number: PHHY2014AU024965

PATIENT
  Age: 74 Year
  Sex: Female
  Weight: 160 kg

DRUGS (10)
  1. ACLASTA [Suspect]
     Indication: OSTEOPOROTIC FRACTURE
     Dosage: 5 MG, UNK
     Route: 042
     Dates: start: 20120124
  2. ACLASTA [Suspect]
     Dosage: 5 MG, UNK
     Route: 042
     Dates: start: 20130306
  3. ACIMAX [Concomitant]
     Dosage: 1 DF, QD
  4. AVAMYS [Concomitant]
     Dosage: 2 DF, QD
     Route: 055
  5. AVAMYS [Concomitant]
     Dosage: 1 DF, QD
     Route: 055
  6. AVAPRO HCT [Concomitant]
     Dosage: 1 DF, IN THE MORNING (300/12.5 MG)
  7. GANFORT [Concomitant]
     Dosage: 1 DF, QD
  8. LIPEX [Concomitant]
     Dosage: 1 DF, BEFORE BED
  9. METFORMIN [Concomitant]
     Dosage: 2 DF, IN THE EVENING
  10. PANADOL OSTEO [Concomitant]
     Dosage: 2 DF, TID

REACTIONS (2)
  - Vitamin D decreased [Unknown]
  - Creatinine renal clearance decreased [Unknown]
